FAERS Safety Report 26190041 (Version 1)
Quarter: 2025Q4

REPORT INFORMATION
  Report Type: Report from Study
  Country: MX (occurrence: MX)
  Receive Date: 20251223
  Receipt Date: 20251223
  Transmission Date: 20260118
  Serious: Yes (Other)
  Sender: ALEXION PHARMACEUTICALS
  Company Number: MX-AstraZeneca-CH-01014885A

PATIENT
  Sex: Female
  Weight: 70 kg

DRUGS (5)
  1. OLAPARIB [Suspect]
     Active Substance: OLAPARIB
     Indication: Neoplasm malignant
     Dosage: 300 MILLIGRAM, Q12H
     Route: 061
  2. OLAPARIB [Suspect]
     Active Substance: OLAPARIB
     Dosage: UNK
     Route: 065
  3. BEVACIZUMAB [Suspect]
     Active Substance: BEVACIZUMAB
     Indication: Neoplasm malignant
     Dosage: UNK, Q3W
     Route: 065
  4. LOSARTAN [Concomitant]
     Active Substance: LOSARTAN
     Dosage: 50 MG IN THE MORNING AND HALF (25 MG) AT NIGHT
     Route: 061
  5. LYRICA [Concomitant]
     Active Substance: PREGABALIN
     Indication: Neuropathy peripheral
     Dosage: 75 MILLIGRAM, QD
     Route: 061
     Dates: start: 202407

REACTIONS (6)
  - Neuropathy peripheral [Recovered/Resolved]
  - Decreased appetite [Unknown]
  - Taste disorder [Unknown]
  - Hypertension [Unknown]
  - Hypersensitivity [Unknown]
  - Rhinorrhoea [Unknown]
